FAERS Safety Report 9641434 (Version 1)
Quarter: 2013Q4

REPORT INFORMATION
  Report Type: Report from Study
  Country: US (occurrence: US)
  Receive Date: 20131023
  Receipt Date: 20131023
  Transmission Date: 20140711
  Serious: No
  Sender: FDA-Public Use
  Company Number: US-ABBVIE-13P-163-1058357-00

PATIENT
  Age: 38 Year
  Sex: Female
  Weight: 66.74 kg

DRUGS (10)
  1. LUPRON DEPOT [Suspect]
     Indication: UTERINE LEIOMYOMA
     Route: 030
     Dates: start: 20130131
  2. LUPRON DEPOT [Suspect]
     Indication: MENORRHAGIA
  3. LUPRON DEPOT [Suspect]
     Indication: ENDOMETRIOSIS
  4. LUPRON DEPOT [Suspect]
     Indication: UTERINE LEIOMYOMA
     Route: 030
     Dates: start: 20130227
  5. LUPRON DEPOT [Suspect]
     Indication: MENORRHAGIA
  6. LUPRON DEPOT [Suspect]
     Indication: ENDOMETRIOSIS
  7. SERTRALINE [Concomitant]
     Indication: PRODUCT USED FOR UNKNOWN INDICATION
     Dosage: 25 MG DAILY
     Route: 048
  8. PHENTERMINE [Concomitant]
     Indication: WEIGHT DECREASED
  9. TYLENOL [Concomitant]
     Indication: PAIN
  10. ADD-BACK THERAPY [Concomitant]
     Indication: PRODUCT USED FOR UNKNOWN INDICATION

REACTIONS (2)
  - Blood pressure increased [Not Recovered/Not Resolved]
  - Weight increased [Not Recovered/Not Resolved]
